FAERS Safety Report 6110538-7 (Version None)
Quarter: 2009Q1

REPORT INFORMATION
  Report Type: 
  Country: None (occurrence: None)
  Receive Date: 20090310
  Receipt Date: 20090305
  Transmission Date: 20090719
  Serious: No
  Sender: FDA-Public Use
  Company Number: US-B.I. PHARMACEUTICALS,INC./RIDGEFIELD-2009-BP-02751BP

PATIENT
  Age: 57 Year
  Sex: Male

DRUGS (6)
  1. COMBIVENT [Suspect]
     Indication: OXYGEN CONSUMPTION DECREASED
     Route: 055
  2. FLUNISOLIDE [Concomitant]
     Indication: MULTIPLE ALLERGIES
  3. ALBUTEROL [Concomitant]
     Route: 055
  4. ANTI-HYPERTENSIVE MED [Concomitant]
     Indication: HYPERTENSION
  5. ARTHRITIS MED [Concomitant]
     Indication: ARTHRITIS
  6. SIMVASTATIN [Concomitant]

REACTIONS (1)
  - BREATH ALCOHOL TEST POSITIVE [None]
